FAERS Safety Report 9671317 (Version 1)
Quarter: 2013Q4

REPORT INFORMATION
  Report Type: Spontaneous
  Country: FR (occurrence: FR)
  Receive Date: 20131106
  Receipt Date: 20131106
  Transmission Date: 20140711
  Serious: Yes (Hospitalization)
  Sender: FDA-Public Use
  Company Number: FR-MERCK-1311FRA000762

PATIENT
  Age: 64 Year
  Sex: Male

DRUGS (2)
  1. VIRAFERONPEG [Suspect]
     Indication: CHRONIC HEPATITIS C
     Dosage: 1 DF, QW
     Route: 058
     Dates: start: 20130312, end: 20130716
  2. REBETOL [Concomitant]
     Indication: CHRONIC HEPATITIS C
     Dosage: 800 MG, QD
     Route: 048
     Dates: start: 20130312

REACTIONS (1)
  - Injection site abscess [Recovered/Resolved]
